FAERS Safety Report 19042191 (Version 2)
Quarter: 2021Q2

REPORT INFORMATION
  Report Type: Spontaneous
  Country: DE (occurrence: DE)
  Receive Date: 20210323
  Receipt Date: 20210402
  Transmission Date: 20210717
  Serious: Yes (Other)
  Sender: FDA-Public Use
  Company Number: DE-AUROBINDO-AUR-APL-2021-010954

PATIENT
  Age: 37 Year
  Sex: Female

DRUGS (3)
  1. REBIF [Suspect]
     Active Substance: INTERFERON BETA-1A
     Dosage: 44 MICROGRAM 0.33 WEEK
     Route: 058
     Dates: start: 2020, end: 202102
  2. IBUPROFEN. [Suspect]
     Active Substance: IBUPROFEN
     Indication: PRODUCT USED FOR UNKNOWN INDICATION
     Dosage: UNK
     Route: 065
  3. REBIF [Suspect]
     Active Substance: INTERFERON BETA-1A
     Indication: MULTIPLE SCLEROSIS
     Dosage: 22 MICROGRAM 0.33 WEEK
     Route: 058
     Dates: start: 201009, end: 202102

REACTIONS (8)
  - Liver function test increased [Unknown]
  - Gastritis [Unknown]
  - Headache [Unknown]
  - Multiple sclerosis [Unknown]
  - Poor quality sleep [Unknown]
  - Insomnia [Unknown]
  - Injury [Unknown]
  - Pain in extremity [Unknown]

NARRATIVE: CASE EVENT DATE: 202012
